FAERS Safety Report 5946707-6 (Version None)
Quarter: 2008Q4

REPORT INFORMATION
  Report Type: 
  Country: None (occurrence: None)
  Receive Date: 20081110
  Receipt Date: 20081001
  Transmission Date: 20090506
  Serious: No
  Sender: FDA-Public Use
  Company Number: A0749066A

PATIENT
  Age: 63 Year
  Sex: Female

DRUGS (20)
  1. ALTABAX [Suspect]
     Indication: WOUND
     Route: 061
     Dates: start: 20080901, end: 20080901
  2. CYMBALTA [Concomitant]
  3. LEXAPRO [Concomitant]
  4. LISINOPRIL [Concomitant]
  5. BYETTA [Concomitant]
  6. METAMUCIL [Concomitant]
  7. KADIAN [Concomitant]
  8. VICODIN [Concomitant]
  9. DOXYCYCLINE [Concomitant]
  10. SALAGEN [Concomitant]
  11. ASPIRIN [Concomitant]
  12. CALCIPOTRIENE [Concomitant]
  13. NYSTOP POWDER [Concomitant]
  14. NEOSPORIN [Concomitant]
  15. VALTREX [Concomitant]
  16. TRAZODONE HCL [Concomitant]
  17. VAGINAL CREAM [Concomitant]
  18. CENTRUM SILVER [Concomitant]
  19. CALTRATE + D [Concomitant]
  20. CRANBERRY [Concomitant]

REACTIONS (2)
  - BURNING SENSATION [None]
  - FEELING HOT [None]
